FAERS Safety Report 6849402-4 (Version None)
Quarter: 2010Q3

REPORT INFORMATION
  Report Type: 
  Country: None (occurrence: None)
  Receive Date: 20100716
  Receipt Date: 20100705
  Transmission Date: 20110219
  Serious: Yes (Hospitalization)
  Sender: FDA-Public Use
  Company Number: ES-ELI_LILLY_AND_COMPANY-ES201007000822

PATIENT
  Age: 73 Year
  Sex: Female

DRUGS (4)
  1. ZYPREXA [Suspect]
     Indication: DEPRESSION
     Dosage: 10 MG, DAILY (1/D)
     Route: 048
     Dates: end: 20100411
  2. ZYPREXA [Suspect]
     Dosage: 5 MG, DAILY (1/D)
     Route: 048
     Dates: end: 20100402
  3. DISTRANEURINE [Concomitant]
     Indication: INSOMNIA
     Dosage: UNK, UNK
     Route: 048
     Dates: end: 20100402
  4. REXER [Concomitant]
     Indication: DEPRESSION
     Dosage: 30 MG, DAILY (1/D)
     Route: 048
     Dates: end: 20100411

REACTIONS (4)
  - ABNORMAL BEHAVIOUR [None]
  - AGITATION [None]
  - FALL [None]
  - HIP FRACTURE [None]
